FAERS Safety Report 20658798 (Version 1)
Quarter: 2022Q1

REPORT INFORMATION
  Report Type: Spontaneous
  Country: JP (occurrence: None)
  Receive Date: 20220331
  Receipt Date: 20220331
  Transmission Date: 20220424
  Serious: Yes (Other)
  Sender: FDA-Public Use
  Company Number: 2022A115525

PATIENT
  Age: 84 Year
  Sex: Male

DRUGS (1)
  1. LOKELMA [Suspect]
     Active Substance: SODIUM ZIRCONIUM CYCLOSILICATE
     Dosage: DOSE UNKNOWN
     Route: 048

REACTIONS (4)
  - Pulmonary oedema [Unknown]
  - Computerised tomogram abdomen abnormal [Unknown]
  - Emphysema [Unknown]
  - Pneumonia [Unknown]
